FAERS Safety Report 24885981 (Version 1)
Quarter: 2025Q1

REPORT INFORMATION
  Report Type: Spontaneous
  Country: GB (occurrence: GB)
  Receive Date: 20250125
  Receipt Date: 20250125
  Transmission Date: 20250408
  Serious: Yes (Disabling)
  Sender: ACCORD
  Company Number: GB-MLMSERVICE-20250110-PI345434-00221-1

PATIENT
  Age: 26 Year
  Sex: Female

DRUGS (2)
  1. METOPROLOL [Suspect]
     Active Substance: METOPROLOL
     Indication: Inappropriate sinus tachycardia
  2. IVABRADINE HYDROCHLORIDE [Suspect]
     Active Substance: IVABRADINE HYDROCHLORIDE
     Indication: Inappropriate sinus tachycardia

REACTIONS (2)
  - Visual impairment [Unknown]
  - Dizziness [Unknown]
